FAERS Safety Report 16576118 (Version 1)
Quarter: 2019Q3

REPORT INFORMATION
  Report Type: Spontaneous
  Country: US (occurrence: US)
  Receive Date: 20190603
  Receipt Date: 20190603
  Transmission Date: 20191004
  Serious: Yes (Death)
  Sender: FDA-Public Use
  Company Number: None

PATIENT
  Age: 58 Year
  Sex: Male
  Weight: 113 kg

DRUGS (2)
  1. HUMIRA [Suspect]
     Active Substance: ADALIMUMAB
     Route: 048
     Dates: start: 201806
  2. MELHOTREXATE 20MG [Suspect]
     Active Substance: METHOTREXATE

REACTIONS (5)
  - Septic shock [None]
  - Acute respiratory distress syndrome [None]
  - Right ventricular failure [None]
  - Renal failure [None]
  - Pneumonia [None]

NARRATIVE: CASE EVENT DATE: 20190327
